FAERS Safety Report 5874453-6 (Version None)
Quarter: 2008Q3

REPORT INFORMATION
  Report Type: 
  Country: None (occurrence: None)
  Receive Date: 20080908
  Receipt Date: 20080827
  Transmission Date: 20090109
  Serious: Yes (Hospitalization)
  Sender: FDA-Public Use
  Company Number: US-PFIZER INC-2008072477

PATIENT
  Age: 63 Year
  Sex: Male
  Weight: 94 kg

DRUGS (10)
  1. ACCUPRIL [Suspect]
  2. OMACOR [Suspect]
  3. BLINDED SU11248 (SU011248) [Suspect]
     Indication: RENAL CELL CARCINOMA
     Route: 048
     Dates: start: 20080529
  4. COREG [Suspect]
  5. HUMALOG [Suspect]
     Dosage: TEXT:25 MG IN AM; 25 MG IN PM (50/50)
  6. HYDRALAZINE HYDROCHLORIDE [Suspect]
  7. LEXAPRO [Suspect]
  8. NOVOLOG [Suspect]
     Dosage: TEXT:100 UNITS/ML-FREQ:TID
     Route: 058
  9. PRAVACHOL [Suspect]
  10. ACETYLSALICYLIC ACID SRT [Concomitant]

REACTIONS (2)
  - BRADYCARDIA [None]
  - SYNCOPE [None]
